FAERS Safety Report 9702541 (Version 2)
Quarter: 2014Q1

REPORT INFORMATION
  Report Type: Spontaneous
  Country: US (occurrence: US)
  Receive Date: 20131121
  Receipt Date: 20140114
  Transmission Date: 20141002
  Serious: Yes (Hospitalization)
  Sender: FDA-Public Use
  Company Number: US-B.I. PHARMACEUTICALS,INC./RIDGEFIELD-2013-BI-37679BP

PATIENT
  Age: 44 Year
  Sex: Male
  Weight: 90.72 kg

DRUGS (3)
  1. PRADAXA [Suspect]
     Indication: ATRIAL FIBRILLATION
     Dosage: 300 MG
     Dates: start: 20110307, end: 20111113
  2. ADVAIR [Concomitant]
     Dosage: 4 PUF
  3. SOTALOL [Concomitant]
     Dosage: 200 MG

REACTIONS (1)
  - Upper gastrointestinal haemorrhage [Unknown]
